FAERS Safety Report 5353944-0 (Version None)
Quarter: 2007Q2

REPORT INFORMATION
  Report Type: 
  Country: None (occurrence: None)
  Receive Date: 20070608
  Receipt Date: 20070608
  Transmission Date: 20071010
  Serious: Yes (Other)
  Sender: FDA-Public Use
  Company Number: None

PATIENT
  Age: 57 Year
  Sex: Male
  Weight: 73.4827 kg

DRUGS (1)
  1. TAXOTERE [Suspect]
     Indication: PANCREATIC DISORDER
     Dosage: 60 IV WEEKLY IV
     Route: 042
     Dates: start: 20070529, end: 20070607

REACTIONS (2)
  - BACK PAIN [None]
  - DYSPNOEA [None]
